FAERS Safety Report 13023121 (Version 1)
Quarter: 2016Q4

REPORT INFORMATION
  Report Type: Spontaneous
  Country: US (occurrence: US)
  Receive Date: 20161213
  Receipt Date: 20161213
  Transmission Date: 20170207
  Serious: No
  Sender: FDA-Public Use
  Company Number: US-TEVA-666115USA

PATIENT
  Sex: Female
  Weight: 65.38 kg

DRUGS (1)
  1. AZITHROMYCIN ANHYDROUS. [Suspect]
     Active Substance: AZITHROMYCIN ANHYDROUS
     Indication: SINUS DISORDER
     Route: 065
     Dates: start: 20151221

REACTIONS (2)
  - Adverse event [Recovered/Resolved]
  - Skin discolouration [Recovered/Resolved]
